FAERS Safety Report 7545114-2 (Version None)
Quarter: 2011Q2

REPORT INFORMATION
  Report Type: 
  Country: None (occurrence: None)
  Receive Date: 20110606
  Receipt Date: 20110602
  Transmission Date: 20111010
  Serious: Yes (Hospitalization)
  Sender: FDA-Public Use
  Company Number: 2011ST000135

PATIENT
  Age: 57 Year
  Sex: Male
  Weight: 67.1 kg

DRUGS (5)
  1. ACETAMINOPHEN AND OXYCODONE HCL [Concomitant]
  2. DEXAMETHASONE [Concomitant]
  3. DOXORUBICIN HCL [Concomitant]
  4. ONCASPAR [Suspect]
     Indication: MULTIPLE MYELOMA
     Dosage: 4750 IU;QOW;IV
     Route: 042
     Dates: start: 20110414, end: 20110527
  5. NORVASC [Concomitant]

REACTIONS (4)
  - PULMONARY EMBOLISM [None]
  - DYSPNOEA [None]
  - OEDEMA PERIPHERAL [None]
  - ELECTROCARDIOGRAM PR PROLONGATION [None]
